FAERS Safety Report 9370030 (Version 3)
Quarter: 2013Q3

REPORT INFORMATION
  Report Type: Report from Study
  Country: US (occurrence: US)
  Receive Date: 20130626
  Receipt Date: 20130725
  Transmission Date: 20140515
  Serious: Yes (Hospitalization)
  Sender: FDA-Public Use
  Company Number: US-ACTELION-A-NJ2013-84936

PATIENT
  Age: 44 Year
  Sex: Female

DRUGS (5)
  1. TRACLEER [Suspect]
     Indication: PULMONARY ARTERIAL HYPERTENSION
     Dosage: UNK
     Route: 048
  2. REMODULIN [Concomitant]
  3. ADCIRCA [Concomitant]
  4. COUMADIN [Concomitant]
  5. FLOLAN [Concomitant]

REACTIONS (3)
  - Gastrointestinal disorder [Unknown]
  - Viral infection [Unknown]
  - Malaise [Unknown]
